FAERS Safety Report 25211995 (Version 2)
Quarter: 2025Q2

REPORT INFORMATION
  Report Type: Spontaneous
  Country: FR (occurrence: FR)
  Receive Date: 20250418
  Receipt Date: 20250508
  Transmission Date: 20250716
  Serious: Yes (Other)
  Sender: EMD SERONO INC
  Company Number: FR-Merck Healthcare KGaA-2025018377

PATIENT
  Age: 80 Year
  Sex: Female

DRUGS (1)
  1. LEVOTHYROXINE SODIUM [Suspect]
     Active Substance: LEVOTHYROXINE SODIUM
     Indication: Post procedural hypothyroidism

REACTIONS (14)
  - Cerebrovascular accident [Unknown]
  - Blindness unilateral [Unknown]
  - Renal disorder [Unknown]
  - Gait inability [Unknown]
  - Chills [Unknown]
  - Pain [Unknown]
  - Hypertension [Unknown]
  - Nervous system disorder [Unknown]
  - Oedema peripheral [Unknown]
  - Ear pain [Unknown]
  - Peripheral nerve palsy [Unknown]
  - Peripheral swelling [Unknown]
  - Pharyngeal oedema [Unknown]
  - Eye oedema [Unknown]
